FAERS Safety Report 18105290 (Version 4)
Quarter: 2021Q2

REPORT INFORMATION
  Report Type: Spontaneous
  Country: NL (occurrence: NL)
  Receive Date: 20200803
  Receipt Date: 20210629
  Transmission Date: 20210717
  Serious: Yes (Other)
  Sender: FDA-Public Use
  Company Number: NL-ALLERGAN-2028408US

PATIENT
  Sex: Female

DRUGS (1)
  1. DEX UNK [Suspect]
     Active Substance: UNSPECIFIED INGREDIENT
     Indication: PERSISTENT CORNEAL EPITHELIAL DEFECT
     Dosage: UNK
     Route: 047

REACTIONS (4)
  - Eye irritation [Recovered/Resolved]
  - Fusarium infection [Recovered/Resolved]
  - Contraindicated product administered [Unknown]
  - Corneal scar [Not Recovered/Not Resolved]
